FAERS Safety Report 5290713-4 (Version None)
Quarter: 2007Q2

REPORT INFORMATION
  Report Type: 
  Country: None (occurrence: None)
  Receive Date: 20070409
  Receipt Date: 20070402
  Transmission Date: 20071010
  Serious: Yes (Other)
  Sender: FDA-Public Use
  Company Number: US-JNJFOC-20070306271

PATIENT
  Sex: Male

DRUGS (7)
  1. FLEXERIL [Suspect]
     Indication: DRUG USE FOR UNKNOWN INDICATION
  2. CELEXA [Suspect]
     Indication: DRUG USE FOR UNKNOWN INDICATION
  3. DARVOCET [Suspect]
     Indication: DRUG USE FOR UNKNOWN INDICATION
  4. INDERAL [Suspect]
     Indication: DRUG USE FOR UNKNOWN INDICATION
  5. IMERTIX [Suspect]
     Indication: DRUG USE FOR UNKNOWN INDICATION
  6. NAPROXEN [Suspect]
     Indication: DRUG USE FOR UNKNOWN INDICATION
  7. ELAVIL [Suspect]
     Indication: DRUG USE FOR UNKNOWN INDICATION

REACTIONS (1)
  - DRUG SCREEN POSITIVE [None]
